FAERS Safety Report 8218406-1 (Version None)
Quarter: 2012Q1

REPORT INFORMATION
  Report Type: 
  Country: None (occurrence: None)
  Receive Date: 20120319
  Receipt Date: 20120302
  Transmission Date: 20120608
  Serious: Yes (Other)
  Sender: FDA-Public Use
  Company Number: BR-GLAXOSMITHKLINE-B0789202A

PATIENT
  Sex: Male
  Weight: 90 kg

DRUGS (7)
  1. FLUTICASONE PROPIONATE/SALMETEROL [Suspect]
     Indication: CHRONIC OBSTRUCTIVE PULMONARY DISEASE
     Dosage: 2PUFF PER DAY
     Route: 055
     Dates: start: 20070301, end: 20110901
  2. PENTOXIFYLLINE [Concomitant]
     Dosage: 800MG PER DAY
     Dates: start: 20020101
  3. METFORMIN HCL [Concomitant]
     Dosage: 2550MCG PER DAY
     Dates: start: 19970101
  4. PRANDIN [Concomitant]
     Dosage: 6MG PER DAY
     Dates: start: 20090101
  5. ASPIRIN [Concomitant]
     Dosage: 100MG PER DAY
     Dates: start: 20090101
  6. CLONAZEPAM [Concomitant]
     Dates: start: 19970101
  7. DIOVAN [Concomitant]
     Dosage: 160MG PER DAY
     Dates: start: 20090101

REACTIONS (4)
  - THROAT IRRITATION [None]
  - OROPHARYNGEAL DISCOMFORT [None]
  - PNEUMONIA [None]
  - COUGH [None]
